FAERS Safety Report 12759001 (Version 1)
Quarter: 2016Q3

REPORT INFORMATION
  Report Type: Spontaneous
  Country: US (occurrence: US)
  Receive Date: 20160915
  Receipt Date: 20160915
  Transmission Date: 20161109
  Serious: No
  Sender: FDA-Public Use
  Company Number: None

PATIENT
  Age: 56 Year
  Sex: Male

DRUGS (1)
  1. XYNTHA [Suspect]
     Active Substance: ANTIHEMOPHILIC FACTOR, HUMAN RECOMBINANT RESIDUES 743-1636 DELETED
     Indication: FACTOR VII DEFICIENCY
     Dosage: 6000UNITS  MWF AND PRN
     Route: 042
     Dates: start: 20130413

REACTIONS (2)
  - Product reconstitution issue [None]
  - Product quality issue [None]

NARRATIVE: CASE EVENT DATE: 20160728
